FAERS Safety Report 5609490-X (Version None)
Quarter: 2008Q1

REPORT INFORMATION
  Report Type: 
  Country: None (occurrence: None)
  Receive Date: 20080131
  Receipt Date: 20080121
  Transmission Date: 20080703
  Serious: Yes (Other)
  Sender: FDA-Public Use
  Company Number: DE-PFIZER INC-2008006403

PATIENT
  Sex: Male

DRUGS (2)
  1. XALATAN [Suspect]
     Route: 047
  2. ASPIRIN [Concomitant]

REACTIONS (2)
  - ATRIAL FLUTTER [None]
  - BRADYCARDIA [None]
